FAERS Safety Report 10149289 (Version 3)
Quarter: 2017Q2

REPORT INFORMATION
  Report Type: Spontaneous
  Country: CA (occurrence: CA)
  Receive Date: 20140502
  Receipt Date: 20170614
  Transmission Date: 20170829
  Serious: Yes (Other)
  Sender: FDA-Public Use
  Company Number: CA-009507513-1201USA01454

PATIENT
  Age: 52 Year
  Sex: Male

DRUGS (11)
  1. ISENTRESS [Suspect]
     Active Substance: RALTEGRAVIR POTASSIUM
     Dosage: 200 MG, TWICE DAILY (ALSO REPORTED AS ^2 EVERY 1 DAY(S)^)
     Route: 048
  2. ASPIRIN. [Concomitant]
     Active Substance: ASPIRIN
     Dosage: UNK
     Route: 065
  3. ZIAGEN [Suspect]
     Active Substance: ABACAVIR SULFATE
     Indication: PRODUCT USED FOR UNKNOWN INDICATION
     Dosage: 600 MG, DAILY (ALSO REPORTED AS ^1 EVERY 1 DAY(S)^)
     Route: 065
  4. PREZISTA [Suspect]
     Active Substance: DARUNAVIR ETHANOLATE
     Dosage: 600 MG, DAILY (ALSO REPORTED AS ^1 EVERY 1 DAY(S)^)
     Route: 048
  5. RITONAVIR. [Suspect]
     Active Substance: RITONAVIR
     Indication: PRODUCT USED FOR UNKNOWN INDICATION
     Dosage: 200 MG, DAILY (ALSO REPORTED AS ^1 EVERY 1 DAY(S)^)
     Route: 065
  6. ISENTRESS [Suspect]
     Active Substance: RALTEGRAVIR POTASSIUM
     Indication: PRODUCT USED FOR UNKNOWN INDICATION
     Dosage: 400 MG, TWICE DAILY (ALSO REPORTED AS ^2 EVERY 1 DAY(S)^)
     Route: 048
  7. IMODIUM [Concomitant]
     Active Substance: LOPERAMIDE HYDROCHLORIDE
     Dosage: UNK
     Route: 065
  8. ACETAMINOPHEN. [Concomitant]
     Active Substance: ACETAMINOPHEN
     Dosage: UNK
     Route: 065
  9. ISENTRESS [Suspect]
     Active Substance: RALTEGRAVIR POTASSIUM
     Dosage: 2 DF, TWICE DAILY (ALSO REPORTED AS ^2 EVERY 1 DAY(S)^)
     Route: 048
  10. FUZEON [Suspect]
     Active Substance: ENFUVIRTIDE
     Indication: PRODUCT USED FOR UNKNOWN INDICATION
     Dosage: 180 MG, DAILY (ALSO REPORTED AS ^1 EVERY 1 DAY(S)^)
     Route: 058
  11. PREZISTA [Suspect]
     Active Substance: DARUNAVIR ETHANOLATE
     Indication: PRODUCT USED FOR UNKNOWN INDICATION
     Dosage: 1200 MG, DAILY (ALSO REPORTED AS ^1 EVERY 1 DAY(S)^)
     Route: 048

REACTIONS (3)
  - Ecchymosis [Recovered/Resolved]
  - Accidental overdose [Unknown]
  - Underdose [Unknown]
